FAERS Safety Report 8965354 (Version 1)
Quarter: 2012Q4

REPORT INFORMATION
  Report Type: 
  Country: US (occurrence: US)
  Receive Date: 20121213
  Receipt Date: 20121213
  Transmission Date: 20130627
  Serious: No
  Sender: FDA-Public Use
  Company Number: US-VERTEX PHARMACEUTICALS INC.-2012-025912

PATIENT
  Sex: Female
  Weight: 54 kg

DRUGS (10)
  1. VX-950 (TELAPREVIR) [Suspect]
     Indication: HEPATITIS C
     Dosage: 750 mg, tid
     Route: 048
  2. RIBAVIRIN [Concomitant]
     Dosage: 200 mg, UNK
  3. PEGASYS [Concomitant]
     Dosage: 180 ?g, UNK
  4. MULTIVITAMIN                       /00097801/ [Concomitant]
  5. VITAMIN C                          /00008001/ [Concomitant]
     Dosage: 500 mg, UNK
  6. VITAMIN D /00107901/ [Concomitant]
     Dosage: 1000 ut, UNK
  7. LYSINE [Concomitant]
     Dosage: 1000 mg, UNK
  8. FISH OIL [Concomitant]
  9. CALCIUM 600 + D [Concomitant]
  10. TRYPTOPHAN                         /00215101/ [Concomitant]
     Dosage: 500 mg, UNK

REACTIONS (1)
  - Nausea [Unknown]
